FAERS Safety Report 12802678 (Version 2)
Quarter: 2016Q4

REPORT INFORMATION
  Report Type: Spontaneous
  Country: IT (occurrence: IT)
  Receive Date: 20161003
  Receipt Date: 20161018
  Transmission Date: 20170207
  Serious: Yes (Other)
  Sender: FDA-Public Use
  Company Number: IT-PFIZER INC-2016446497

PATIENT
  Age: 82 Year
  Sex: Male

DRUGS (6)
  1. LANSOPRAZOLE. [Concomitant]
     Active Substance: LANSOPRAZOLE
     Dosage: UNK
  2. METFORMIN [Concomitant]
     Active Substance: METFORMIN HYDROCHLORIDE
     Dosage: UNK
  3. TRIATEC [Suspect]
     Active Substance: RAMIPRIL
     Indication: HYPERTENSION
     Dosage: 2 DF, DAILY
     Route: 048
     Dates: start: 20160101, end: 20160820
  4. CARDIOASPIRIN [Suspect]
     Active Substance: ASPIRIN
     Indication: THROMBOSIS PROPHYLAXIS
     Dosage: 100 MG, DAILY
     Route: 048
     Dates: start: 20160101, end: 20160820
  5. CRESTOR [Concomitant]
     Active Substance: ROSUVASTATIN CALCIUM
     Dosage: UNK
  6. LASIX [Suspect]
     Active Substance: FUROSEMIDE
     Indication: ANURIA
     Dosage: 1 DF, DAILY
     Route: 048
     Dates: start: 20160101, end: 20160820

REACTIONS (3)
  - Subdural haematoma [Recovering/Resolving]
  - Presyncope [Recovering/Resolving]
  - Head injury [Recovering/Resolving]

NARRATIVE: CASE EVENT DATE: 20160820
